FAERS Safety Report 7576379-9 (Version None)
Quarter: 2011Q2

REPORT INFORMATION
  Report Type: 
  Country: None (occurrence: None)
  Receive Date: 20110628
  Receipt Date: 20100116
  Transmission Date: 20111010
  Serious: Yes (Death, Other)
  Sender: FDA-Public Use
  Company Number: US-BAYER-201011015NA

PATIENT
  Age: 71 Year
  Sex: Male
  Weight: 88 kg

DRUGS (3)
  1. TRASYLOL [Suspect]
     Indication: CARDIAC OPERATION
     Dosage: UNK
     Route: 042
     Dates: start: 19930704
  2. LASIX [Concomitant]
     Dosage: UNK
     Dates: start: 19930101, end: 20060101
  3. TRASYLOL [Suspect]
     Indication: CORONARY ARTERY BYPASS
     Route: 042
     Dates: start: 19950702

REACTIONS (14)
  - FEAR [None]
  - ANHEDONIA [None]
  - RENAL IMPAIRMENT [None]
  - RENAL INJURY [None]
  - UNEVALUABLE EVENT [None]
  - DEPRESSION [None]
  - ORGAN FAILURE [None]
  - RENAL FAILURE [None]
  - CEREBROVASCULAR ACCIDENT [None]
  - ANXIETY [None]
  - DEATH [None]
  - CARDIAC DISORDER [None]
  - INJURY [None]
  - PAIN [None]
